FAERS Safety Report 6522228-7 (Version None)
Quarter: 2009Q4

REPORT INFORMATION
  Report Type: 
  Country: None (occurrence: None)
  Receive Date: 20091229
  Receipt Date: 20091229
  Transmission Date: 20100525
  Serious: No
  Sender: FDA-Public Use
  Company Number: None

PATIENT
  Age: 47 Year
  Sex: Male
  Weight: 113 kg

DRUGS (3)
  1. LITHIUM CARBONATE [Suspect]
     Indication: BIPOLAR DISORDER
     Dosage: 450 PO BID
     Route: 048
     Dates: start: 20091109, end: 20091118
  2. BUMETANIDE [Concomitant]
  3. CHLORTHIAZIDE TAB [Concomitant]

REACTIONS (5)
  - ATRIAL FIBRILLATION [None]
  - DEPRESSED LEVEL OF CONSCIOUSNESS [None]
  - DISORIENTATION [None]
  - FLUID OVERLOAD [None]
  - HYPERHIDROSIS [None]
